FAERS Safety Report 16911493 (Version 1)
Quarter: 2019Q4

REPORT INFORMATION
  Report Type: Spontaneous
  Country: US (occurrence: US)
  Receive Date: 20191013
  Receipt Date: 20191013
  Transmission Date: 20200122
  Serious: No
  Sender: FDA-Public Use
  Company Number: US-C B FLEET CO INC-201810-US-002511

PATIENT
  Sex: Female

DRUGS (1)
  1. MICONAZOLE NITRATE. [Suspect]
     Active Substance: MICONAZOLE NITRATE
     Indication: PRODUCT USED FOR UNKNOWN INDICATION
     Dosage: USED 1
     Route: 067

REACTIONS (10)
  - Vulvovaginal pain [Recovering/Resolving]
  - Anal pruritus [Recovering/Resolving]
  - Oropharyngeal pain [Recovering/Resolving]
  - Vulvovaginal pruritus [Recovering/Resolving]
  - Infection [Recovering/Resolving]
  - Lymphadenitis [Recovering/Resolving]
  - Inappropriate schedule of product administration [None]
  - Vulvovaginal burning sensation [Recovering/Resolving]
  - Vaginal discharge [Recovering/Resolving]
  - Chemical burn of skin [Recovering/Resolving]
